FAERS Safety Report 6301806-4 (Version None)
Quarter: 2009Q3

REPORT INFORMATION
  Report Type: 
  Country: None (occurrence: None)
  Receive Date: 20090807
  Receipt Date: 20090731
  Transmission Date: 20100115
  Serious: Yes (Other)
  Sender: FDA-Public Use
  Company Number: US-AVENTIS-200916787US

PATIENT
  Sex: Female

DRUGS (5)
  1. LANTUS [Suspect]
     Dosage: DOSE: 50-70
     Route: 058
  2. OPTICLIK (INSULIN INJECTION PEN) [Suspect]
  3. HUMALOG [Concomitant]
     Dosage: DOSE: SLIDING SCALE
  4. CARDIOVASCULAR SYSTEM DRUGS [Concomitant]
     Dosage: DOSE: UNK
  5. CARDIOVASCULAR SYSTEM DRUGS [Concomitant]
     Dosage: DOSE: UNK

REACTIONS (3)
  - DYSPHONIA [None]
  - OROPHARYNGEAL PAIN [None]
  - VOCAL CORD POLYP [None]
